FAERS Safety Report 5050438-7 (Version None)
Quarter: 2006Q3

REPORT INFORMATION
  Report Type: 
  Country: None (occurrence: None)
  Receive Date: 20060713
  Receipt Date: 20060509
  Transmission Date: 20061208
  Serious: Yes (Other)
  Sender: FDA-Public Use
  Company Number: 2006PK01000

PATIENT
  Age: 3559 Day
  Sex: Female
  Weight: 30 kg

DRUGS (2)
  1. EMLA [Suspect]
     Indication: LOCAL ANAESTHESIA
     Route: 061
     Dates: start: 20060504
  2. ADVANTAN [Concomitant]
     Indication: ECZEMA

REACTIONS (4)
  - BLISTER [None]
  - DERMATITIS BULLOUS [None]
  - ERYTHEMA [None]
  - HAEMORRHAGE [None]
